FAERS Safety Report 4352058-6 (Version None)
Quarter: 2004Q2

REPORT INFORMATION
  Report Type: 
  Country: None (occurrence: None)
  Receive Date: 20040429
  Receipt Date: 20040120
  Transmission Date: 20050107
  Serious: No
  Sender: FDA-Public Use
  Company Number: 2004-113345-NL

PATIENT
  Age: 27 Year
  Sex: Female
  Weight: 90.9 kg

DRUGS (6)
  1. NUVARING [Suspect]
     Indication: CONTRACEPTION
     Dosage: DF DAILY VAGINAL
     Route: 067
     Dates: start: 20030101
  2. ZITHROMAX [Concomitant]
  3. AUGMENTIN [Concomitant]
  4. IBUPROFEN [Concomitant]
  5. LEVSIN PB [Concomitant]
  6. XANAX [Concomitant]

REACTIONS (3)
  - DEVICE FAILURE [None]
  - MEDICAL DEVICE DISCOMFORT [None]
  - MUSCLE CRAMP [None]
